FAERS Safety Report 24543365 (Version 4)
Quarter: 2024Q4

REPORT INFORMATION
  Report Type: Spontaneous
  Country: JP (occurrence: JP)
  Receive Date: 20241024
  Receipt Date: 20241219
  Transmission Date: 20250115
  Serious: Yes (Hospitalization, Other)
  Sender: AMGEN
  Company Number: JP-TAKEDA-2024TJP014833

PATIENT
  Age: 78 Year
  Sex: Female
  Weight: 42.9 kg

DRUGS (29)
  1. VECTIBIX [Suspect]
     Active Substance: PANITUMUMAB
     Indication: Colon cancer
     Dosage: 1.8 MILLIGRAM/KILOGRAM, Q2WEEKS
     Route: 042
     Dates: start: 20231204, end: 20240327
  2. VECTIBIX [Suspect]
     Active Substance: PANITUMUMAB
     Indication: Metastases to liver
     Dosage: UNK
     Route: 065
  3. OXALIPLATIN [Suspect]
     Active Substance: OXALIPLATIN
     Indication: Product used for unknown indication
     Dosage: UNK
     Route: 065
     Dates: start: 20231204, end: 20240207
  4. LEVOLEUCOVORIN CALCIUM [Suspect]
     Active Substance: LEVOLEUCOVORIN CALCIUM
     Indication: Product used for unknown indication
     Dosage: UNK
     Route: 065
     Dates: start: 20231204, end: 20240327
  5. FLUOROURACIL [Suspect]
     Active Substance: FLUOROURACIL
     Indication: Product used for unknown indication
     Dosage: UNK
     Route: 065
     Dates: start: 20231204, end: 20240327
  6. VONOPRAZAN FUMARATE [Concomitant]
     Active Substance: VONOPRAZAN FUMARATE
     Dosage: UNK
     Route: 065
  7. THEOPHYLLINE [Concomitant]
     Active Substance: THEOPHYLLINE
     Dosage: SLOW RELEASE TABLET
     Route: 065
  8. VILDAGLIPTIN [Concomitant]
     Active Substance: VILDAGLIPTIN
     Dosage: UNK
     Route: 065
  9. VILDAGLIPTIN [Concomitant]
     Active Substance: VILDAGLIPTIN
     Dosage: UNK
     Route: 065
     Dates: start: 20240419
  10. AZILSARTAN KAMEDOXOMIL [Concomitant]
     Active Substance: AZILSARTAN KAMEDOXOMIL
     Dosage: UNK
     Route: 065
  11. ATORVASTATIN [Concomitant]
     Active Substance: ATORVASTATIN
     Dosage: UNK
     Route: 065
  12. ATORVASTATIN [Concomitant]
     Active Substance: ATORVASTATIN
     Dosage: UNK
     Route: 065
     Dates: start: 20240419
  13. AMLODIPINE [Concomitant]
     Active Substance: AMLODIPINE BESYLATE
     Dosage: UNK
     Route: 065
  14. ASPIRIN [Concomitant]
     Active Substance: ASPIRIN
     Dosage: UNK
     Route: 065
  15. ADETPHOS [Concomitant]
     Active Substance: ADENOSINE TRIPHOSPHATE
     Dosage: UNK
     Route: 065
  16. OXIS [Concomitant]
     Active Substance: FORMOTEROL FUMARATE
     Dosage: UNK
     Route: 050
  17. OXIS [Concomitant]
     Active Substance: FORMOTEROL FUMARATE
     Dosage: UNK
     Route: 050
     Dates: start: 20240415
  18. MAGNESIUM OXIDE [Concomitant]
     Active Substance: MAGNESIUM OXIDE
     Dosage: UNK
     Route: 048
     Dates: start: 20231219, end: 20240220
  19. MAGNESIUM OXIDE [Concomitant]
     Active Substance: MAGNESIUM OXIDE
     Dosage: 330 MILLIGRAM, TID
     Route: 048
     Dates: start: 20240423
  20. SODIUM CHLORIDE [Concomitant]
     Active Substance: SODIUM CHLORIDE
     Dosage: UNK
     Route: 065
     Dates: start: 20231204, end: 20240327
  21. DEXAMETHASONE SODIUM PHOSPHATE [Concomitant]
     Active Substance: DEXAMETHASONE SODIUM PHOSPHATE
     Dosage: UNK
     Route: 065
     Dates: start: 20231204, end: 20240327
  22. PALONOSETRON [Concomitant]
     Active Substance: PALONOSETRON
     Dosage: UNK
     Route: 065
     Dates: start: 20231204, end: 20240327
  23. FOSNETUPITANT CHLORIDE HYDROCHLORIDE [Concomitant]
     Active Substance: FOSNETUPITANT CHLORIDE HYDROCHLORIDE
     Dosage: UNK
     Route: 065
     Dates: start: 20231219, end: 20240207
  24. SODIUM CHLORIDE [Concomitant]
     Active Substance: SODIUM CHLORIDE
     Dosage: UNK
     Route: 065
     Dates: start: 20231204, end: 20240327
  25. DEXTROSE [Concomitant]
     Active Substance: DEXTROSE MONOHYDRATE
     Dosage: UNK
     Route: 065
     Dates: start: 20231204, end: 20240207
  26. DEXTROSE [Concomitant]
     Active Substance: DEXTROSE MONOHYDRATE
     Dosage: UNK
     Route: 065
     Dates: start: 20231204, end: 20240327
  27. MINOCYCLINE HYDROCHLORIDE [Concomitant]
     Active Substance: MINOCYCLINE HYDROCHLORIDE
     Dosage: UNK
     Route: 065
     Dates: start: 20231204, end: 20240123
  28. GLYCOSAMINOGLYCANS [Concomitant]
     Active Substance: GLYCOSAMINOGLYCANS
     Dosage: UNK
     Route: 065
     Dates: start: 20231204, end: 20231218
  29. GLYCOSAMINOGLYCANS [Concomitant]
     Active Substance: GLYCOSAMINOGLYCANS
     Dosage: UNK
     Route: 065
     Dates: start: 20231219, end: 20240410

REACTIONS (9)
  - Hemiplegia [Recovered/Resolved]
  - Hypomagnesaemia [Recovered/Resolved]
  - Hypocalcaemia [Recovered/Resolved]
  - Hypokalaemia [Recovered/Resolved]
  - Vertigo positional [Unknown]
  - Fall [Recovered/Resolved]
  - Feeling abnormal [Recovered/Resolved]
  - Blood glucose increased [Recovered/Resolved]
  - Pyrexia [Recovered/Resolved]

NARRATIVE: CASE EVENT DATE: 20240411
